FAERS Safety Report 8024059-8 (Version None)
Quarter: 2011Q4

REPORT INFORMATION
  Report Type: 
  Country: None (occurrence: None)
  Receive Date: 20111130
  Receipt Date: 20101201
  Transmission Date: 20120403
  Serious: Yes (Hospitalization)
  Sender: FDA-Public Use
  Company Number: 317400

PATIENT
  Age: 56 Year
  Sex: Male
  Weight: 99.8 kg

DRUGS (6)
  1. SIMVASTATIN [Concomitant]
  2. NOVOLOG [Suspect]
     Indication: TYPE 1 DIABETES MELLITUS
     Dosage: 70 U, QD, SUBCUTAN.-PUMP
     Route: 058
  3. BENAZEPRIL/HCTZ (BENAZEPRIL HYDROCHLORIDE, HYDROCHLOROTHIAZIDE) ONGOIN [Concomitant]
  4. OMEPRAZOLE (OMEPRAZOLE) ONGOING [Concomitant]
  5. METOPROLOL (METOPROLOL) ONGOING [Concomitant]
  6. AMLODIPINE (AMLODIPINE) ONGOING [Concomitant]

REACTIONS (1)
  - BLOOD GLUCOSE INCREASED [None]
